FAERS Safety Report 10563228 (Version 1)
Quarter: 2014Q4

REPORT INFORMATION
  Report Type: Spontaneous
  Country: US (occurrence: None)
  Receive Date: 20141103
  Receipt Date: 20141103
  Transmission Date: 20150529
  Serious: Yes (Hospitalization)
  Sender: FDA-Public Use
  Company Number: None

PATIENT
  Age: 43 Year
  Sex: Male

DRUGS (5)
  1. DIAZEPAM. [Suspect]
     Active Substance: DIAZEPAM
     Route: 048
  2. DIAZEPAM. [Concomitant]
     Active Substance: DIAZEPAM
  3. TRAMADOL [Suspect]
     Active Substance: TRAMADOL
     Indication: PAIN
     Dosage: EVERY 8 HOURS
     Route: 048
     Dates: start: 20140809
  4. DIVALPROEX [Concomitant]
     Active Substance: DIVALPROEX SODIUM
  5. TRAMADOL [Concomitant]
     Active Substance: TRAMADOL

REACTIONS (4)
  - Toxicity to various agents [None]
  - Mental status changes [None]
  - Vomiting [None]
  - Hypoxia [None]

NARRATIVE: CASE EVENT DATE: 20140809
